FAERS Safety Report 20454680 (Version 1)
Quarter: 2022Q1

REPORT INFORMATION
  Report Type: Spontaneous
  Country: US (occurrence: None)
  Receive Date: 20220210
  Receipt Date: 20220210
  Transmission Date: 20220423
  Serious: Yes (Hospitalization)
  Sender: FDA-Public Use
  Company Number: None

PATIENT
  Age: 8 Year
  Sex: Male
  Weight: 22.7 kg

DRUGS (6)
  1. CYTARABINE [Suspect]
     Active Substance: CYTARABINE
  2. CYTARABINE [Suspect]
     Active Substance: CYTARABINE
     Dates: end: 20220102
  3. ZINECARD [Suspect]
     Active Substance: DEXRAZOXANE HYDROCHLORIDE
     Dates: end: 20220104
  4. MITOXANTRONE HYDROCHLORIDE [Suspect]
     Active Substance: MITOXANTRONE HYDROCHLORIDE
     Dates: end: 20220104
  5. HYDROCORTISONE [Suspect]
     Active Substance: HYDROCORTISONE
     Dates: end: 20211229
  6. METHOTREXATE [Suspect]
     Active Substance: METHOTREXATE
     Dates: end: 20211229

REACTIONS (9)
  - Alpha haemolytic streptococcal infection [None]
  - Alpha haemolytic streptococcal infection [None]
  - Streptococcal sepsis [None]
  - Distributive shock [None]
  - Hypovolaemic shock [None]
  - Gastrointestinal necrosis [None]
  - SARS-CoV-2 test positive [None]
  - Jejunal perforation [None]
  - Pancytopenia [None]

NARRATIVE: CASE EVENT DATE: 20220115
